FAERS Safety Report 8603978-5 (Version None)
Quarter: 2012Q3

REPORT INFORMATION
  Report Type: 
  Country: None (occurrence: None)
  Receive Date: 20120820
  Receipt Date: 20120810
  Transmission Date: 20120928
  Serious: Yes (Hospitalization, Other)
  Sender: FDA-Public Use
  Company Number: US-BIOGENIDEC-2012BI030761

PATIENT
  Age: 62 Year
  Sex: Female

DRUGS (3)
  1. AVONEX [Suspect]
     Route: 030
     Dates: start: 20090101
  2. AVONEX [Suspect]
     Indication: MULTIPLE SCLEROSIS
     Route: 030
     Dates: start: 20000331, end: 20050101
  3. AVONEX [Suspect]
     Route: 030
     Dates: start: 20050101, end: 20090101

REACTIONS (25)
  - ADRENAL DISORDER [None]
  - OSTEOPOROSIS [None]
  - ATAXIA [None]
  - BLOOD PARATHYROID HORMONE INCREASED [None]
  - URINARY TRACT INFECTION [None]
  - VERTIGO POSITIONAL [None]
  - ASTHENIA [None]
  - COORDINATION ABNORMAL [None]
  - DEHYDRATION [None]
  - HERPES OPHTHALMIC [None]
  - NEURILEMMOMA [None]
  - ARTHRITIS [None]
  - NYSTAGMUS [None]
  - INFLUENZA LIKE ILLNESS [None]
  - PAIN [None]
  - DIZZINESS [None]
  - BLOOD PRESSURE INCREASED [None]
  - BLOOD TEST ABNORMAL [None]
  - STRESS FRACTURE [None]
  - HYPERSOMNIA [None]
  - HEADACHE [None]
  - PROCEDURAL PAIN [None]
  - FOOT DEFORMITY [None]
  - NOREPINEPHRINE INCREASED [None]
  - HEART RATE INCREASED [None]
